FAERS Safety Report 16312966 (Version 1)
Quarter: 2019Q2

REPORT INFORMATION
  Report Type: Spontaneous
  Country: DE (occurrence: DE)
  Receive Date: 20190515
  Receipt Date: 20190515
  Transmission Date: 20190711
  Serious: Yes (Other)
  Sender: FDA-Public Use
  Company Number: DE-TEVA-2019-DE-1050112

PATIENT
  Age: 55 Year
  Sex: Female
  Weight: 85 kg

DRUGS (1)
  1. RABEPRAZOL-RATIOPHARM 20 MG MAGENSAFTRESISTENTE TABLETTEN [Suspect]
     Active Substance: RABEPRAZOLE
     Dosage: 20 MILLIGRAM DAILY;
     Dates: start: 20190329, end: 20190405

REACTIONS (4)
  - Swollen tongue [Unknown]
  - Sleep disorder [Unknown]
  - Pharyngeal swelling [Unknown]
  - Stomatitis [Unknown]

NARRATIVE: CASE EVENT DATE: 20190405
